FAERS Safety Report 9382013 (Version 1)
Quarter: 2013Q3

REPORT INFORMATION
  Report Type: Spontaneous
  Country: BR (occurrence: BR)
  Receive Date: 20130703
  Receipt Date: 20130703
  Transmission Date: 20140515
  Serious: Yes (Death, Other)
  Sender: FDA-Public Use
  Company Number: PHHY2013BR069119

PATIENT
  Sex: Male
  Weight: 90 kg

DRUGS (2)
  1. DIOVAN AMLO [Suspect]
     Indication: HYPERTENSION
     Dosage: UNK
     Dates: end: 2005
  2. DIOVAN AMLO [Suspect]
     Dosage: 1 DF, UNK
     Dates: start: 2005

REACTIONS (4)
  - Brain neoplasm malignant [Fatal]
  - Convulsion [Recovered/Resolved]
  - Hemiplegia [Not Recovered/Not Resolved]
  - Fall [Not Recovered/Not Resolved]
